FAERS Safety Report 11074209 (Version 1)
Quarter: 2015Q2

REPORT INFORMATION
  Report Type: Spontaneous
  Country: US (occurrence: None)
  Receive Date: 20150428
  Receipt Date: 20150428
  Transmission Date: 20150821
  Serious: Yes (Other)
  Sender: FDA-Public Use
  Company Number: None

PATIENT
  Age: 59 Year
  Sex: Female
  Weight: 55.79 kg

DRUGS (3)
  1. INVANZ [Suspect]
     Active Substance: ERTAPENEM SODIUM
     Indication: DIVERTICULITIS
     Dosage: 1GR/1 TIME A DAY  QD  INTRAVENOUS
     Route: 042
     Dates: start: 20150323, end: 20150406
  2. DILAUDID [Concomitant]
     Active Substance: HYDROMORPHONE HYDROCHLORIDE
  3. HEPARIN [Concomitant]
     Active Substance: HEPARIN SODIUM

REACTIONS (4)
  - Dysgraphia [None]
  - Hypoaesthesia [None]
  - Paraesthesia [None]
  - Impaired driving ability [None]

NARRATIVE: CASE EVENT DATE: 20150325
